FAERS Safety Report 18320957 (Version 3)
Quarter: 2020Q4

REPORT INFORMATION
  Report Type: Spontaneous
  Country: KR (occurrence: KR)
  Receive Date: 20200929
  Receipt Date: 20201030
  Transmission Date: 20210113
  Serious: Yes (Life-Threatening, Hospitalization, Other)
  Sender: FDA-Public Use
  Company Number: KR-ACCORD-202938

PATIENT
  Age: 48 Year
  Sex: Male
  Weight: 84.7 kg

DRUGS (3)
  1. IVABRADINE/IVABRADINE HYDROCHLORIDE [Interacting]
     Active Substance: IVABRADINE HYDROCHLORIDE
     Indication: CARDIAC FAILURE ACUTE
     Route: 048
     Dates: start: 20150224, end: 20150425
  2. TORASEMIDE [Interacting]
     Active Substance: TORSEMIDE
     Indication: CARDIAC FAILURE ACUTE
     Route: 048
     Dates: start: 20150414
  3. FUROSEMIDE. [Suspect]
     Active Substance: FUROSEMIDE
     Indication: CARDIAC FAILURE ACUTE
     Dosage: ROUTE: INTRAVASCULAR
     Route: 042
     Dates: start: 20150417, end: 20150421

REACTIONS (4)
  - Drug level increased [Recovered/Resolved]
  - Drug interaction [Unknown]
  - Torsade de pointes [Recovered/Resolved]
  - Syncope [Unknown]

NARRATIVE: CASE EVENT DATE: 20150425
